FAERS Safety Report 8267365-4 (Version None)
Quarter: 2012Q2

REPORT INFORMATION
  Report Type: 
  Country: None (occurrence: None)
  Receive Date: 20120409
  Receipt Date: 20120329
  Transmission Date: 20120825
  Serious: Yes (Hospitalization)
  Sender: FDA-Public Use
  Company Number: PHHY2012VE027860

PATIENT
  Sex: Female

DRUGS (1)
  1. NEORAL [Suspect]
     Indication: EYE DISORDER
     Dosage: UNK UKN, UNK
     Dates: start: 20120101

REACTIONS (1)
  - STEVENS-JOHNSON SYNDROME [None]
